FAERS Safety Report 6536465-9 (Version None)
Quarter: 2010Q1

REPORT INFORMATION
  Report Type: 
  Country: None (occurrence: None)
  Receive Date: 20100113
  Receipt Date: 20100111
  Transmission Date: 20100710
  Serious: Yes (Hospitalization)
  Sender: FDA-Public Use
  Company Number: US-MERCK-1001USA00066

PATIENT
  Age: 56 Year
  Sex: Male

DRUGS (2)
  1. FOSAMAX [Suspect]
     Indication: OSTEOPOROSIS
     Route: 048
     Dates: start: 20080101
  2. DILANTIN [Suspect]
     Route: 065

REACTIONS (3)
  - ATAXIA [None]
  - JAW FRACTURE [None]
  - OESOPHAGEAL CARCINOMA [None]
